FAERS Safety Report 9356374 (Version 2)
Quarter: 2013Q3

REPORT INFORMATION
  Report Type: Spontaneous
  Country: IT (occurrence: IT)
  Receive Date: 20130619
  Receipt Date: 20130702
  Transmission Date: 20140515
  Serious: Yes (Hospitalization)
  Sender: FDA-Public Use
  Company Number: IT-BAYER-2013-074632

PATIENT
  Age: 83 Year
  Sex: Female

DRUGS (6)
  1. CARDIOASPIRIN [Suspect]
     Indication: MYOCARDIAL ISCHAEMIA
     Dosage: 10 MG, QD
     Route: 048
     Dates: start: 20080101, end: 20121024
  2. TICLOPIDINE [Interacting]
     Indication: THROMBOSIS PROPHYLAXIS
     Dosage: 250 MG, QD
     Route: 048
     Dates: start: 20080101
  3. SIMVASTATIN [Concomitant]
  4. TENORMIN [Concomitant]
     Indication: HYPERTENSION
  5. ANTACAL [Concomitant]
  6. ANTRA [Concomitant]

REACTIONS (1)
  - Anaemia [Recovering/Resolving]
